FAERS Safety Report 23648621 (Version 2)
Quarter: 2024Q3

REPORT INFORMATION
  Report Type: Report from Study
  Country: US (occurrence: US)
  Receive Date: 20240319
  Receipt Date: 20240905
  Transmission Date: 20241017
  Serious: Yes (Other)
  Sender: JOHNSON AND JOHNSON
  Company Number: US-JNJFOC-20240331474

PATIENT
  Sex: Female

DRUGS (4)
  1. SPRAVATO [Suspect]
     Active Substance: ESKETAMINE
     Indication: Major depression
     Dosage: SPRAVATO TREATMENT FOR THE LAST FEW YEARS WERE ONCE EVERY TWO WEEKS
     Dates: start: 202004
  2. SPRAVATO [Suspect]
     Active Substance: ESKETAMINE
     Indication: Suicidal ideation
  3. SPRAVATO [Suspect]
     Active Substance: ESKETAMINE
     Indication: Suicidal behaviour
     Dosage: NOW ITS ONCE EVERY THREE WEEKS FOR THE LAST COUPLE MONTHS.
     Dates: start: 2024
  4. EFFEXOR [Concomitant]
     Active Substance: VENLAFAXINE HYDROCHLORIDE
     Indication: Major depression
     Route: 065
     Dates: start: 2021

REACTIONS (5)
  - Back injury [Unknown]
  - Intervertebral disc protrusion [Unknown]
  - Mood altered [Unknown]
  - Feeling abnormal [Unknown]
  - Off label use [Unknown]

NARRATIVE: CASE EVENT DATE: 20200101
